FAERS Safety Report 7732865-X (Version None)
Quarter: 2011Q3

REPORT INFORMATION
  Report Type: 
  Country: None (occurrence: None)
  Receive Date: 20110907
  Receipt Date: 20110829
  Transmission Date: 20111222
  Serious: Yes (Other)
  Sender: FDA-Public Use
  Company Number: JP-ABBOTT-11P-087-0851440-00

PATIENT
  Age: 29 Year
  Sex: Male

DRUGS (3)
  1. HUMIRA [Suspect]
  2. HUMIRA [Suspect]
     Indication: CROHN'S DISEASE
     Route: 058
     Dates: start: 20110330, end: 20110330
  3. HUMIRA [Suspect]

REACTIONS (1)
  - GASTROINTESTINAL PERFORATION [None]
